FAERS Safety Report 5266678-8 (Version None)
Quarter: 2007Q1

REPORT INFORMATION
  Report Type: 
  Country: None (occurrence: None)
  Receive Date: 20070312
  Receipt Date: 20070306
  Transmission Date: 20070707
  Serious: Yes (Life-Threatening, Hospitalization)
  Sender: FDA-Public Use
  Company Number: 2007JP000639

PATIENT
  Age: 79 Year
  Sex: Male
  Weight: 44.6 kg

DRUGS (8)
  1. VESICARE [Suspect]
     Indication: NEUROGENIC BLADDER
     Dosage: 5 MG, UID/QD, ORAL
     Route: 048
     Dates: start: 20061125, end: 20061206
  2. MICARDIS [Concomitant]
  3. LASIX [Concomitant]
  4. URINORM (BENZBROMARONE) TABLET, 50 MG [Concomitant]
  5. VASOLAN (VERAPAMIL HYDROCHLORIDE) TABLET [Concomitant]
  6. SERMION (NICERGOLINE) TABLET [Concomitant]
  7. KAMAG G (MAGNESIUM OXIDE) POWDER [Concomitant]
  8. SYMMETREL [Concomitant]

REACTIONS (7)
  - ACUTE RESPIRATORY FAILURE [None]
  - DRY MOUTH [None]
  - HEPATIC ENZYME INCREASED [None]
  - HEPATIC FUNCTION ABNORMAL [None]
  - INTERSTITIAL LUNG DISEASE [None]
  - LIVER DISORDER [None]
  - RENAL IMPAIRMENT [None]
